FAERS Safety Report 20651372 (Version 1)
Quarter: 2022Q1

REPORT INFORMATION
  Report Type: Report from Study
  Country: CA (occurrence: CA)
  Receive Date: 20220330
  Receipt Date: 20220330
  Transmission Date: 20220423
  Serious: Yes (Other)
  Sender: FDA-Public Use
  Company Number: CA-ABBVIE-22K-028-4257032-00

PATIENT
  Age: 38 Year
  Sex: Male

DRUGS (4)
  1. HUMIRA [Suspect]
     Active Substance: ADALIMUMAB
     Indication: Psoriasis
     Route: 058
     Dates: start: 20200303
  2. COVID-19 VACCINE [Concomitant]
     Indication: COVID-19 immunisation
     Dosage: 1ST DOSE
     Route: 030
     Dates: start: 2021, end: 2021
  3. COVID-19 VACCINE [Concomitant]
     Dosage: 2ND DOSE
     Route: 030
     Dates: start: 2021, end: 2021
  4. COVID-19 VACCINE [Concomitant]
     Dosage: 3RD DOSE
     Route: 030
     Dates: start: 20220125, end: 20220125

REACTIONS (4)
  - Rhabdomyolysis [Unknown]
  - Exposure to SARS-CoV-2 [Unknown]
  - COVID-19 [Unknown]
  - Cardiovascular disorder [Unknown]

NARRATIVE: CASE EVENT DATE: 20220101
